FAERS Safety Report 4796699-0 (Version None)
Quarter: 2005Q4

REPORT INFORMATION
  Report Type: 
  Country: None (occurrence: None)
  Receive Date: 20051003
  Receipt Date: 20041001
  Transmission Date: 20060501
  Serious: Yes (Other)
  Sender: FDA-Public Use
  Company Number: PHEH2004US10650

PATIENT
  Age: 57 Year
  Sex: Female

DRUGS (1)
  1. ESTRADIOL + NORETHISTERONE ACETATE(ESTRADIOL, NORETHISTERONE ACETATE) [Suspect]
     Indication: MENOPAUSAL SYMPTOMS
     Dosage: TRANSDERMAL
     Route: 062

REACTIONS (2)
  - BREAST CANCER IN SITU [None]
  - RADICAL MASTECTOMY [None]
